FAERS Safety Report 8460501-6 (Version None)
Quarter: 2012Q2

REPORT INFORMATION
  Report Type: 
  Country: None (occurrence: None)
  Receive Date: 20120622
  Receipt Date: 20120619
  Transmission Date: 20120825
  Serious: No
  Sender: FDA-Public Use
  Company Number: US-PFIZER INC-2012148120

PATIENT
  Sex: Male
  Weight: 8.6 kg

DRUGS (2)
  1. SINGULAIR [Concomitant]
     Indication: LOWER RESPIRATORY TRACT INFECTION
     Dosage: UNK
  2. PEDIATRIC ADVIL [Suspect]
     Indication: PYREXIA
     Dosage: 3.75 ML, UNK
     Route: 048
     Dates: start: 20120619

REACTIONS (2)
  - OVERDOSE [None]
  - PYREXIA [None]
